FAERS Safety Report 7213168-9 (Version None)
Quarter: 2010Q4

REPORT INFORMATION
  Report Type: 
  Country: None (occurrence: None)
  Receive Date: 20101227
  Receipt Date: 20101215
  Transmission Date: 20110411
  Serious: Yes (Other)
  Sender: FDA-Public Use
  Company Number: 023835

PATIENT
  Sex: Male

DRUGS (1)
  1. CIMZIA [Suspect]
     Indication: CROHN'S DISEASE
     Dosage: (SUBCUTANEOUS)
     Route: 058
     Dates: start: 20100720

REACTIONS (8)
  - ABDOMINAL PAIN [None]
  - CONDITION AGGRAVATED [None]
  - DECREASED APPETITE [None]
  - FATIGUE [None]
  - FEELING ABNORMAL [None]
  - JOINT SWELLING [None]
  - PROCEDURAL SITE REACTION [None]
  - SPINAL FRACTURE [None]
